FAERS Safety Report 12168531 (Version 2)
Quarter: 2016Q4

REPORT INFORMATION
  Report Type: Spontaneous
  Country: US (occurrence: US)
  Receive Date: 20160310
  Receipt Date: 20161020
  Transmission Date: 20170207
  Serious: Yes (Death, Hospitalization, Other)
  Sender: FDA-Public Use
  Company Number: US-BRISTOL-MYERS SQUIBB COMPANY-BMS-2016-016606

PATIENT
  Sex: Male

DRUGS (1)
  1. ELIQUIS [Suspect]
     Active Substance: APIXABAN
     Indication: PRODUCT USED FOR UNKNOWN INDICATION
     Dosage: 1 TAB, BID OR 04FEB2016
     Route: 048
     Dates: start: 20160203

REACTIONS (5)
  - Rash macular [Unknown]
  - Death [Fatal]
  - Bone cancer [Unknown]
  - Renal impairment [Unknown]
  - Haemorrhage [Unknown]
